FAERS Safety Report 5570473-X (Version None)
Quarter: 2007Q4

REPORT INFORMATION
  Report Type: 
  Country: None (occurrence: None)
  Receive Date: 20071221
  Receipt Date: 20071107
  Transmission Date: 20080405
  Serious: Yes (Other)
  Sender: FDA-Public Use
  Company Number: US-BRISTOL-MYERS SQUIBB COMPANY-13929351

PATIENT
  Age: 77 Year
  Sex: Female
  Weight: 68 kg

DRUGS (6)
  1. ORENCIA [Suspect]
     Indication: RHEUMATOID ARTHRITIS
     Dosage: DOSE-3 VIALS, TAKEN EACH MONTH. LAST INJ NOV06
     Route: 042
     Dates: start: 20060401
  2. ALEVE [Concomitant]
  3. ASCORBIC ACID [Concomitant]
  4. VITAMIN B [Concomitant]
  5. GLUCOSAMINE [Concomitant]
  6. CHONDROITIN [Concomitant]

REACTIONS (7)
  - ARTHRITIS [None]
  - BREAST CANCER [None]
  - LYMPHOEDEMA [None]
  - PRURITUS [None]
  - RASH [None]
  - SKIN HAEMORRHAGE [None]
  - STASIS DERMATITIS [None]
